FAERS Safety Report 4551263-3 (Version None)
Quarter: 2005Q1

REPORT INFORMATION
  Report Type: 
  Country: None (occurrence: None)
  Receive Date: 20050106
  Receipt Date: 20041223
  Transmission Date: 20050727
  Serious: Yes (Hospitalization)
  Sender: FDA-Public Use
  Company Number: 209093

PATIENT
  Age: 69 Year
  Sex: Female
  Weight: 62 kg

DRUGS (7)
  1. RITUXIMAB (RITUXIMAB) CONC FOR SOLUTION FOR INFUSION [Suspect]
     Indication: CHRONIC LYMPHOCYTIC LEUKAEMIA
     Dosage: 500 MG Q28D INTRAVENOUS
     Route: 042
     Dates: start: 20040202, end: 20040705
  2. FLUDARABINE PHOSPHATE [Suspect]
     Indication: CHRONIC LYMPHOCYTIC LEUKAEMIA
     Dosage: 25MG/M2 Q28D INTRAVENOUS
     Route: 042
     Dates: start: 20040203, end: 20040707
  3. CYCLOPHOSPHAMIDE [Suspect]
     Indication: CHRONIC LYMPHOCYTIC LEUKAEMIA
     Dosage: 250 MG /M2 Q28D INTRAVENOUS
     Route: 042
     Dates: start: 20040203, end: 20040707
  4. BACTRIM DS [Concomitant]
  5. VALACYCLOVIR HCL [Concomitant]
  6. PREDNISONE [Concomitant]
  7. POTASSIUM CHLORIDE [Concomitant]

REACTIONS (7)
  - BLOOD FIBRINOGEN INCREASED [None]
  - BLOOD SODIUM DECREASED [None]
  - LEUKOENCEPHALOPATHY [None]
  - LISTERIA ENCEPHALITIS [None]
  - PANCYTOPENIA [None]
  - PYREXIA [None]
  - VIRAL DNA TEST POSITIVE [None]
